FAERS Safety Report 10622858 (Version 1)
Quarter: 2014Q4

REPORT INFORMATION
  Report Type: Spontaneous
  Country: US (occurrence: US)
  Receive Date: 20141203
  Receipt Date: 20141203
  Transmission Date: 20150529
  Serious: No
  Sender: FDA-Public Use
  Company Number: US-ELI_LILLY_AND_COMPANY-US201411001604

PATIENT
  Sex: Male

DRUGS (2)
  1. AXIRON [Suspect]
     Active Substance: TESTOSTERONE
     Indication: BLOOD TESTOSTERONE DECREASED
     Dosage: 360 MG, QD
     Route: 061
     Dates: start: 201305
  2. AXIRON [Suspect]
     Active Substance: TESTOSTERONE
     Dosage: 360 MG, QD
     Route: 061
     Dates: start: 20141030

REACTIONS (2)
  - Incorrect dose administered [Unknown]
  - Overdose [Unknown]
